FAERS Safety Report 7577258-3 (Version None)
Quarter: 2011Q2

REPORT INFORMATION
  Report Type: 
  Country: None (occurrence: None)
  Receive Date: 20110628
  Receipt Date: 20110610
  Transmission Date: 20111010
  Serious: Yes (Hospitalization, Other)
  Sender: FDA-Public Use
  Company Number: US-BAYER-2011-014352

PATIENT
  Age: 35 Year
  Sex: Female
  Weight: 63 kg

DRUGS (3)
  1. YAZ [Suspect]
     Indication: PRODUCT USED FOR UNKNOWN INDICATION
     Dosage: UNK
     Dates: start: 20080501
  2. DOXYCYCLINE [Concomitant]
     Indication: ACNE
     Dosage: 40 MG, QD
  3. ADVIL LIQUI-GELS [Concomitant]
     Dosage: UNK UNK, PRN

REACTIONS (1)
  - PULMONARY EMBOLISM [None]
